FAERS Safety Report 6132510-3 (Version None)
Quarter: 2009Q1

REPORT INFORMATION
  Report Type: 
  Country: None (occurrence: None)
  Receive Date: 20090324
  Receipt Date: 20090313
  Transmission Date: 20090719
  Serious: Yes (Other)
  Sender: FDA-Public Use
  Company Number: 2009AP001193

PATIENT
  Age: 54 Year
  Sex: Female

DRUGS (1)
  1. RAMIPRIL [Suspect]

REACTIONS (6)
  - CONDITION AGGRAVATED [None]
  - CUTANEOUS LUPUS ERYTHEMATOSUS [None]
  - DRUG ERUPTION [None]
  - GRANULOMA [None]
  - LICHENOID KERATOSIS [None]
  - STOMATITIS [None]
